FAERS Safety Report 6178011-8 (Version None)
Quarter: 2009Q2

REPORT INFORMATION
  Report Type: 
  Country: None (occurrence: None)
  Receive Date: 20090504
  Receipt Date: 20090428
  Transmission Date: 20091009
  Serious: Yes (Other)
  Sender: FDA-Public Use
  Company Number: US-AMGEN-US342940

PATIENT
  Sex: Female
  Weight: 55.4 kg

DRUGS (14)
  1. NPLATE [Suspect]
     Indication: IDIOPATHIC THROMBOCYTOPENIC PURPURA
     Dates: start: 20081013
  2. AMBIEN [Concomitant]
  3. PERCOCET [Concomitant]
  4. CORTICOSTEROIDS [Concomitant]
     Dates: start: 20050501, end: 20080601
  5. IMMUNOGLOBULINS [Concomitant]
     Route: 042
  6. AZATHIOPRINE [Concomitant]
     Dates: start: 20050701
  7. CELLCEPT [Concomitant]
     Dates: start: 20060101
  8. WINRHO [Concomitant]
     Dates: start: 20050501
  9. NAPROXEN [Concomitant]
  10. PLAQUENIL [Concomitant]
  11. ZOFRAN [Concomitant]
  12. ZANTAC [Concomitant]
  13. DIPHENHYDRAMINE HYDROCHLORIDE [Concomitant]
  14. XANAX [Concomitant]

REACTIONS (2)
  - PLATELET COUNT DECREASED [None]
  - PULMONARY EMBOLISM [None]
